FAERS Safety Report 14906795 (Version 2)
Quarter: 2018Q2

REPORT INFORMATION
  Report Type: Spontaneous
  Country: JP (occurrence: JP)
  Receive Date: 20180517
  Receipt Date: 20180525
  Transmission Date: 20180711
  Serious: Yes (Other)
  Sender: FDA-Public Use
  Company Number: JP-ASTRAZENECA-2018SE56764

PATIENT
  Age: 85 Year
  Sex: Female

DRUGS (1)
  1. OMEPRAL [Suspect]
     Active Substance: OMEPRAZOLE
     Indication: GASTROOESOPHAGEAL REFLUX DISEASE
     Dosage: DOSE UNKNOWN
     Route: 048
     Dates: start: 201609

REACTIONS (2)
  - Fall [Recovered/Resolved]
  - Pubis fracture [Recovered/Resolved]

NARRATIVE: CASE EVENT DATE: 20180306
